FAERS Safety Report 23481704 (Version 6)
Quarter: 2024Q3

REPORT INFORMATION
  Report Type: Report from Study
  Country: SK (occurrence: SK)
  Receive Date: 20240205
  Receipt Date: 20240914
  Transmission Date: 20241017
  Serious: Yes (Death, Hospitalization, Other)
  Sender: ROCHE
  Company Number: SK-ROCHE-3497989

PATIENT
  Age: 62 Year
  Sex: Female
  Weight: 52.0 kg

DRUGS (3)
  1. GLOFITAMAB [Suspect]
     Active Substance: GLOFITAMAB
     Indication: Diffuse large B-cell lymphoma
     Dosage: CYCLE 1 D8: STATUS POST THE FIRST ADMINISTRATION OF GLOFITAMAB 06/JUL/2023?C 1 D15: STATUS POST THE
     Route: 042
     Dates: start: 20230706, end: 20231004
  2. OBINUTUZUMAB [Suspect]
     Active Substance: OBINUTUZUMAB
     Indication: Diffuse large B-cell lymphoma
     Route: 042
     Dates: start: 20230627
  3. LEVOFLOXACIN [Concomitant]
     Active Substance: LEVOFLOXACIN
     Indication: Pneumonia
     Route: 042
     Dates: start: 20231113, end: 20231123

REACTIONS (21)
  - Thrombocytopenia [Recovered/Resolved]
  - Cytomegalovirus infection [Fatal]
  - Bronchopulmonary aspergillosis [Fatal]
  - Pneumocystis jirovecii pneumonia [Fatal]
  - Parainfluenzae virus infection [Recovered/Resolved]
  - Rhinovirus infection [Recovered/Resolved]
  - Cytokine release syndrome [Unknown]
  - Respiratory failure [Fatal]
  - Hypokalaemia [Unknown]
  - Hypophosphataemia [Unknown]
  - Hypocalcaemia [Unknown]
  - Cardiac arrest [Fatal]
  - Hypoalbuminaemia [Unknown]
  - Diarrhoea [Unknown]
  - Back pain [Unknown]
  - Neutropenia [Unknown]
  - Cytomegalovirus colitis [Unknown]
  - Anaemia [Unknown]
  - Lymphopenia [Unknown]
  - Leukopenia [Unknown]
  - Interstitial lung disease [Unknown]

NARRATIVE: CASE EVENT DATE: 20230913
